FAERS Safety Report 19198248 (Version 2)
Quarter: 2021Q2

REPORT INFORMATION
  Report Type: Spontaneous
  Country: US (occurrence: US)
  Receive Date: 20210430
  Receipt Date: 20210623
  Transmission Date: 20210717
  Serious: Yes (Hospitalization, Other)
  Sender: FDA-Public Use
  Company Number: US-TEVA-2021-US-1904643

PATIENT
  Age: 9 Month
  Sex: Female

DRUGS (5)
  1. CARBOPLATIN. [Suspect]
     Active Substance: CARBOPLATIN
     Indication: RETINOBLASTOMA
     Route: 013
  2. MELPHALAN. [Suspect]
     Active Substance: MELPHALAN
     Indication: RETINOBLASTOMA
     Route: 013
  3. AMOXICILLIN. [Concomitant]
     Active Substance: AMOXICILLIN
     Indication: OTITIS MEDIA ACUTE
     Route: 065
  4. TOPOTECAN [Suspect]
     Active Substance: TOPOTECAN HYDROCHLORIDE
     Indication: RETINOBLASTOMA
     Route: 013
  5. DEXAMETHASONE. [Concomitant]
     Active Substance: DEXAMETHASONE
     Indication: RETINOBLASTOMA
     Route: 042

REACTIONS (3)
  - Retinal detachment [Unknown]
  - Periorbital oedema [Recovering/Resolving]
  - Leukopenia [Unknown]
